FAERS Safety Report 9201006 (Version 2)
Quarter: 2013Q2

REPORT INFORMATION
  Report Type: Report from Study
  Country: US (occurrence: US)
  Receive Date: 20130401
  Receipt Date: 20130422
  Transmission Date: 20140414
  Serious: Yes (Hospitalization)
  Sender: FDA-Public Use
  Company Number: US-JNJFOC-20130315809

PATIENT
  Age: 50 Year
  Sex: Female

DRUGS (4)
  1. REMICADE [Suspect]
     Indication: CROHN^S DISEASE
     Route: 042
     Dates: start: 20121228, end: 20121228
  2. REMICADE [Suspect]
     Indication: CROHN^S DISEASE
     Route: 042
     Dates: start: 201207
  3. LAMICTAL [Concomitant]
     Indication: CONVULSION
     Route: 065
     Dates: start: 2008
  4. WELCHOL [Concomitant]
     Indication: CROHN^S DISEASE
     Route: 065
     Dates: start: 1989

REACTIONS (2)
  - Lupus-like syndrome [Recovered/Resolved]
  - Pneumonia [Unknown]
